FAERS Safety Report 7955168-7 (Version None)
Quarter: 2011Q4

REPORT INFORMATION
  Report Type: 
  Country: None (occurrence: None)
  Receive Date: 20111202
  Receipt Date: 20111121
  Transmission Date: 20120403
  Serious: Yes (Disabling)
  Sender: FDA-Public Use
  Company Number: PHHY2011SE102136

PATIENT
  Sex: Male

DRUGS (2)
  1. TRILEPTAL [Suspect]
     Indication: EPILEPSY
     Dosage: UNK UKN, UNK
  2. VALPROATE SODIUM [Concomitant]
     Dosage: UNK UKN, UNK

REACTIONS (4)
  - FATIGUE [None]
  - DISTURBANCE IN ATTENTION [None]
  - MOOD SWINGS [None]
  - EPILEPSY [None]
